FAERS Safety Report 4931995-5 (Version None)
Quarter: 2006Q1

REPORT INFORMATION
  Report Type: 
  Country: None (occurrence: None)
  Receive Date: 20060303
  Receipt Date: 20060123
  Transmission Date: 20060701
  Serious: Yes (Hospitalization)
  Sender: FDA-Public Use
  Company Number: JP-JPN-A200600281

PATIENT
  Age: 92 Year
  Sex: Male
  Weight: 40 kg

DRUGS (7)
  1. PAXIL [Suspect]
     Indication: DEPRESSION
     Dosage: 10MG PER DAY
     Route: 048
     Dates: start: 20050906, end: 20050913
  2. EPADEL [Concomitant]
     Indication: HEPATIC STEATOSIS
     Dosage: 3CAP PER DAY
     Route: 048
     Dates: start: 20050628, end: 20050921
  3. BIO THREE [Concomitant]
     Indication: CONSTIPATION
     Dosage: 2G PER DAY
     Route: 048
     Dates: start: 20050207
  4. DICLOFENAC SODIUM [Concomitant]
     Indication: OSTEOPOROSIS
     Dosage: 12.5MG PER DAY
     Route: 054
     Dates: start: 20050725
  5. TAVEGYL [Concomitant]
     Indication: PRURITUS
     Dosage: 1MG PER DAY
     Route: 048
     Dates: start: 20041214
  6. TRIAZOLAM [Concomitant]
     Indication: INSOMNIA
     Dosage: .125MG PER DAY
     Route: 048
     Dates: start: 20041214
  7. MAGNESIUM OXIDE [Concomitant]
     Indication: CONSTIPATION
     Dosage: 1G PER DAY
     Route: 048
     Dates: start: 20050207

REACTIONS (6)
  - ANOREXIA [None]
  - APATHY [None]
  - BLOOD SODIUM INCREASED [None]
  - CHEST DISCOMFORT [None]
  - HYPONATRAEMIA [None]
  - MALAISE [None]
